FAERS Safety Report 8193199-5 (Version None)
Quarter: 2012Q1

REPORT INFORMATION
  Report Type: 
  Country: None (occurrence: None)
  Receive Date: 20120308
  Receipt Date: 20120302
  Transmission Date: 20120608
  Serious: Yes (Death)
  Sender: FDA-Public Use
  Company Number: JP-ASTELLAS-2012JP001768

PATIENT
  Age: 22 Year
  Sex: Male

DRUGS (3)
  1. FLUDARABINE PHOSPHATE [Concomitant]
     Indication: BONE MARROW CONDITIONING REGIMEN
     Dosage: 125 MG/M2, UNKNOWN/D
     Route: 065
  2. PROGRAF [Suspect]
     Indication: PROPHYLAXIS AGAINST GRAFT VERSUS HOST DISEASE
     Route: 065
  3. MELPHALAN HYDROCHLORIDE [Concomitant]
     Indication: BONE MARROW CONDITIONING REGIMEN
     Dosage: 180 MG/M2, UNKNOWN/D
     Route: 065

REACTIONS (4)
  - EPSTEIN-BARR VIRUS TEST POSITIVE [None]
  - TOXOPLASMOSIS [None]
  - CYTOMEGALOVIRUS TEST POSITIVE [None]
  - PNEUMONIA TOXOPLASMAL [None]
